FAERS Safety Report 5570337-1 (Version None)
Quarter: 2007Q4

REPORT INFORMATION
  Report Type: 
  Country: None (occurrence: None)
  Receive Date: 20071219
  Receipt Date: 20071219
  Transmission Date: 20080405
  Serious: Yes (Other)
  Sender: FDA-Public Use
  Company Number: None

PATIENT
  Age: 37 Year
  Sex: Female
  Weight: 70.3075 kg

DRUGS (1)
  1. CHANTIX [Suspect]
     Indication: MENTAL DISORDER
     Dosage: 1.0 MG 2X DAILY PO
     Route: 048
     Dates: start: 20071120, end: 20071216

REACTIONS (6)
  - ANXIETY [None]
  - DEPRESSION [None]
  - INTERMITTENT EXPLOSIVE DISORDER [None]
  - IRRITABILITY [None]
  - NEGATIVE THOUGHTS [None]
  - PERSONALITY CHANGE [None]
